FAERS Safety Report 6207421-5 (Version None)
Quarter: 2009Q2

REPORT INFORMATION
  Report Type: 
  Country: None (occurrence: None)
  Receive Date: 20090527
  Receipt Date: 20090527
  Transmission Date: 20091009
  Serious: No
  Sender: FDA-Public Use
  Company Number: None

PATIENT
  Age: 70 Year
  Sex: Female

DRUGS (2)
  1. BACITRACIN [Suspect]
     Indication: EXCORIATION
     Dosage: THERE IS NO DOSE AS NEEDED TOP ONE TIME ONLY
     Route: 061
     Dates: start: 20080525, end: 20090525
  2. BACITRACIN [Suspect]
     Indication: EXCORIATION
     Dosage: THERE IS NO DOSE AS NEEDED TOP ONE TIME ONLY
     Route: 061
     Dates: start: 20090525, end: 20090525

REACTIONS (2)
  - CAUSTIC INJURY [None]
  - PRODUCT QUALITY ISSUE [None]
